FAERS Safety Report 6537726-X (Version None)
Quarter: 2010Q1

REPORT INFORMATION
  Report Type: 
  Country: None (occurrence: None)
  Receive Date: 20100114
  Receipt Date: 20100106
  Transmission Date: 20100710
  Serious: Yes (Hospitalization)
  Sender: FDA-Public Use
  Company Number: US-B.I. PHARMACEUTICALS,INC./RIDGEFIELD-2010-DE-00063GD

PATIENT
  Age: 74 Year
  Sex: Male
  Weight: 80 kg

DRUGS (13)
  1. TIOTROPIUM [Suspect]
     Indication: CHRONIC OBSTRUCTIVE PULMONARY DISEASE
     Dosage: 90 MCG
     Route: 055
  2. TIOTROPIUM [Suspect]
     Dosage: 18 MCG
     Route: 055
  3. FLUTICASONE W/SALMETEROL [Suspect]
     Indication: CHRONIC OBSTRUCTIVE PULMONARY DISEASE
     Route: 055
  4. ALBUTEROL [Suspect]
     Indication: CHRONIC OBSTRUCTIVE PULMONARY DISEASE
     Route: 055
  5. LEVOTHYROXINE SODIUM [Suspect]
     Indication: HYPOTHYROIDISM
  6. ASPIRIN [Concomitant]
  7. METOPROLOL SUCCINATE [Concomitant]
     Dosage: 12.5 MG
  8. OMEPRAZOLE [Concomitant]
  9. FUROSEMIDE [Concomitant]
  10. CAPTOPRIL [Concomitant]
  11. CALCIUM/VITAMIN D [Concomitant]
  12. SIMVASTATIN [Concomitant]
  13. EPOETIN ALFA [Concomitant]

REACTIONS (5)
  - ACCIDENTAL OVERDOSE [None]
  - DRY MOUTH [None]
  - MEDICATION ERROR [None]
  - TACHYCARDIA [None]
  - URINARY RETENTION [None]
